FAERS Safety Report 7521660-2 (Version None)
Quarter: 2011Q2

REPORT INFORMATION
  Report Type: 
  Country: None (occurrence: None)
  Receive Date: 20110524
  Receipt Date: 20110510
  Transmission Date: 20111010
  Serious: Yes (Other)
  Sender: FDA-Public Use
  Company Number: US-GDP-11410328

PATIENT
  Sex: Female

DRUGS (15)
  1. COQ10 [Concomitant]
  2. B12-VITAMIN [Concomitant]
  3. COSMETICS [Concomitant]
  4. CALCIUM W/VITAMIN C/VITAMIN D [Concomitant]
  5. METRONIDAZOLE [Suspect]
     Indication: ROSACEA
     Dosage: 1 DF BID TOPICAL
     Route: 061
     Dates: start: 19950101, end: 20110301
  6. B COMPLEX /02945401/ [Concomitant]
  7. KLARON /00150702/ [Concomitant]
  8. FISH OIL [Concomitant]
  9. MULTIVITAMIN /05992801 [Concomitant]
  10. SYNTHROID [Concomitant]
  11. ZYRTEC [Concomitant]
  12. VIVELLE-DOT [Concomitant]
  13. PRILOSEC /00661203/ [Concomitant]
  14. ACETYLISALICYLIC ACID [Concomitant]
  15. MAGNESIUM SULFATE [Concomitant]

REACTIONS (24)
  - DIVERTICULUM [None]
  - SYNOVIAL CYST [None]
  - SCAR [None]
  - LEUKOPLAKIA ORAL [None]
  - EXOSTOSIS [None]
  - PLANTAR FASCIITIS [None]
  - CATARACT [None]
  - NEUROPATHY PERIPHERAL [None]
  - BUNION [None]
  - HIATUS HERNIA [None]
  - HAEMORRHOIDS [None]
  - PALPITATIONS [None]
  - BURSITIS [None]
  - MORTON'S NEUROMA [None]
  - TARSAL TUNNEL SYNDROME [None]
  - INTERVERTEBRAL DISC PROTRUSION [None]
  - DUODENITIS [None]
  - DYSPNOEA [None]
  - SPINAL COLUMN STENOSIS [None]
  - BLOOD CREATININE INCREASED [None]
  - TENDONITIS [None]
  - HEPATIC STEATOSIS [None]
  - HYDRONEPHROSIS [None]
  - BLOOD TRIGLYCERIDES INCREASED [None]
